FAERS Safety Report 15752942 (Version 5)
Quarter: 2019Q1

REPORT INFORMATION
  Report Type: Spontaneous
  Country: CZ (occurrence: CZ)
  Receive Date: 20181221
  Receipt Date: 20190326
  Transmission Date: 20190417
  Serious: Yes (Hospitalization)
  Sender: FDA-Public Use
  Company Number: CZ-B.I. PHARMACEUTICALS,INC./RIDGEFIELD-2018-BI-060567

PATIENT
  Age: 71 Year
  Sex: Male

DRUGS (2)
  1. OFEV [Suspect]
     Active Substance: NINTEDANIB
     Indication: IDIOPATHIC PULMONARY FIBROSIS
     Route: 048
     Dates: start: 201701, end: 2017
  2. OFEV [Suspect]
     Active Substance: NINTEDANIB
     Route: 048
     Dates: start: 2017

REACTIONS (4)
  - Anaemia [Recovered/Resolved]
  - Dyspnoea [Unknown]
  - Diarrhoea [Unknown]
  - Idiopathic pulmonary fibrosis [Unknown]

NARRATIVE: CASE EVENT DATE: 2017
